FAERS Safety Report 9523401 (Version 1)
Quarter: 2013Q1

REPORT INFORMATION
  Report Type: Spontaneous
  Country: US (occurrence: None)
  Receive Date: 20130305
  Receipt Date: 20130305
  Transmission Date: 20140127
  Serious: Yes (Hospitalization)
  Sender: FDA-Public Use
  Company Number: 163-21880-12012567

PATIENT
  Age: 60 Year
  Sex: Male

DRUGS (6)
  1. REVLIMID (LENALIDOMIDE) (25 MILLIGRAM, CAPSULES) [Suspect]
     Indication: PLASMA CELL MYELOMA RECURRENT
     Dosage: 25 MG, X 28, PO
     Route: 048
     Dates: start: 20101223
  2. PROTONIX (UNKNOWN) [Concomitant]
  3. FENTANYL (FENTANYL) (UNKNOWN) (FENTANYL) [Concomitant]
  4. SENNA (SENNA) (UNKNOWN) [Concomitant]
  5. DOCUSATE SODIUM (DOCUSATE SODIUM) (UNKNOWN) [Concomitant]
  6. ACYCLOVIR (ACICLOVIR) (UNKNOWN) [Concomitant]

REACTIONS (2)
  - Platelet count decreased [None]
  - Full blood count decreased [None]
